FAERS Safety Report 12198492 (Version 2)
Quarter: 2016Q4

REPORT INFORMATION
  Report Type: Spontaneous
  Country: US (occurrence: US)
  Receive Date: 20160322
  Receipt Date: 20161025
  Transmission Date: 20170207
  Serious: No
  Sender: FDA-Public Use
  Company Number: US-JNJFOC-20160311975

PATIENT
  Sex: Male

DRUGS (4)
  1. RISPERDAL [Suspect]
     Active Substance: RISPERIDONE
     Indication: OPPOSITIONAL DEFIANT DISORDER
     Dosage: 0.25MG;??0.5MG;??1 MG;??2MG;??2.5MG;??3MG;??4MG
     Route: 048
     Dates: start: 2004, end: 2014
  2. RISPERDAL [Suspect]
     Active Substance: RISPERIDONE
     Indication: CONDUCT DISORDER
     Dosage: 0.25MG;??0.5MG;??1 MG;??2MG;??2.5MG;??3MG;??4MG
     Route: 048
     Dates: start: 2004, end: 2014
  3. RISPERDAL [Suspect]
     Active Substance: RISPERIDONE
     Indication: DRUG THERAPY
     Dosage: 0.25MG;??0.5MG;??1 MG;??2MG;??2.5MG;??3MG;??4MG
     Route: 048
     Dates: start: 2004, end: 2014
  4. RISPERDAL [Suspect]
     Active Substance: RISPERIDONE
     Indication: ANXIETY
     Dosage: 0.25MG;??0.5MG;??1 MG;??2MG;??2.5MG;??3MG;??4MG
     Route: 048
     Dates: start: 2004, end: 2014

REACTIONS (4)
  - Product use issue [Unknown]
  - Abnormal weight gain [Unknown]
  - Off label use [Unknown]
  - Gynaecomastia [Unknown]

NARRATIVE: CASE EVENT DATE: 2004
